FAERS Safety Report 23940133 (Version 4)
Quarter: 2025Q2

REPORT INFORMATION
  Report Type: Spontaneous
  Country: US (occurrence: US)
  Receive Date: 20240605
  Receipt Date: 20250626
  Transmission Date: 20250716
  Serious: Yes (Hospitalization)
  Sender: NOVARTIS
  Company Number: US-002147023-NVSC2024US116432

PATIENT
  Sex: Female

DRUGS (2)
  1. TAFINLAR [Suspect]
     Active Substance: DABRAFENIB MESYLATE
     Indication: Malignant lymphoid neoplasm
     Dosage: 150 MG, BID (BY MOUTH)
     Route: 048
     Dates: start: 202404
  2. MEKINIST [Suspect]
     Active Substance: TRAMETINIB DIMETHYL SULFOXIDE
     Indication: Malignant lymphoid neoplasm
     Dosage: 2 MG, QD (BY MOUTH)
     Route: 048
     Dates: start: 202404

REACTIONS (7)
  - Influenza like illness [Unknown]
  - Dehydration [Unknown]
  - Chills [Unknown]
  - Vomiting [Unknown]
  - Pyrexia [Unknown]
  - Headache [Unknown]
  - Blood cholesterol increased [Unknown]
